FAERS Safety Report 12530920 (Version 2)
Quarter: 2016Q3

REPORT INFORMATION
  Report Type: Spontaneous
  Country: JP (occurrence: JP)
  Receive Date: 20160706
  Receipt Date: 20160725
  Transmission Date: 20161109
  Serious: Yes (Other)
  Sender: FDA-Public Use
  Company Number: JP-SA-2016SA119915

PATIENT
  Age: 12 Year
  Sex: Female

DRUGS (1)
  1. ALLEGRA [Suspect]
     Active Substance: FEXOFENADINE HYDROCHLORIDE
     Indication: RHINITIS ALLERGIC
     Dosage: 60 MG
     Route: 048

REACTIONS (2)
  - Electrocardiogram QT prolonged [Unknown]
  - Electrocardiogram PQ interval prolonged [Unknown]
